FAERS Safety Report 6073862-2 (Version None)
Quarter: 2009Q1

REPORT INFORMATION
  Report Type: 
  Country: None (occurrence: None)
  Receive Date: 20090211
  Receipt Date: 20090204
  Transmission Date: 20090719
  Serious: Yes (Death, Hospitalization, Other)
  Sender: FDA-Public Use
  Company Number: US-AMGEN-US332032

PATIENT
  Sex: Female

DRUGS (3)
  1. NPLATE [Suspect]
     Indication: IDIOPATHIC THROMBOCYTOPENIC PURPURA
     Route: 065
     Dates: start: 20080101, end: 20080101
  2. UNSPECIFIED ANTIHYPERTENSIVE AGENT [Concomitant]
     Route: 065
  3. UNSPECIFIED DIURETIC [Concomitant]
     Route: 065

REACTIONS (2)
  - CARDIAC ARREST [None]
  - DEATH [None]
